FAERS Safety Report 25777413 (Version 1)
Quarter: 2025Q3

REPORT INFORMATION
  Report Type: Spontaneous
  Country: JP (occurrence: JP)
  Receive Date: 20250909
  Receipt Date: 20250909
  Transmission Date: 20251020
  Serious: Yes (Hospitalization)
  Sender: ASTELLAS
  Company Number: JP-ASTELLAS-2025-AER-048202

PATIENT
  Age: 80 Year
  Sex: Female
  Weight: 46 kg

DRUGS (11)
  1. PADCEV [Suspect]
     Active Substance: ENFORTUMAB VEDOTIN-EJFV
     Indication: Bladder cancer
     Route: 042
     Dates: start: 20250603, end: 20250603
  2. PADCEV [Suspect]
     Active Substance: ENFORTUMAB VEDOTIN-EJFV
     Route: 042
     Dates: start: 20250625, end: 20250702
  3. KEYTRUDA [Suspect]
     Active Substance: PEMBROLIZUMAB
     Indication: Bladder cancer
     Route: 042
     Dates: start: 20250603, end: 20250625
  4. JANUVIA [Concomitant]
     Active Substance: SITAGLIPTIN PHOSPHATE
     Indication: Product used for unknown indication
     Route: 065
  5. CLOPIDOGREL [Concomitant]
     Active Substance: CLOPIDOGREL BISULFATE
     Indication: Product used for unknown indication
     Route: 065
  6. ROSUVASTATIN OD Tablet 2.5mg [Concomitant]
     Indication: Product used for unknown indication
     Route: 065
  7. VONOPRAZAN FUMARATE [Concomitant]
     Active Substance: VONOPRAZAN FUMARATE
     Indication: Product used for unknown indication
     Route: 065
  8. BROMHEXINE HYDROCHLORIDE Tablet 4mg [Concomitant]
     Indication: Product used for unknown indication
     Route: 065
  9. OLOPATADINE Hydrochloride OD Tablets 5mg [Concomitant]
     Indication: Product used for unknown indication
     Route: 065
  10. Tafluprost Ophthalmic Solution 0.0015% [Concomitant]
     Indication: Product used for unknown indication
     Route: 047
  11. Dermovate ointment 0.05% [Concomitant]
     Indication: Rash
     Route: 047
     Dates: start: 20250610

REACTIONS (2)
  - Pulmonary toxicity [Recovering/Resolving]
  - Rash [Recovering/Resolving]

NARRATIVE: CASE EVENT DATE: 20250610
